FAERS Safety Report 24207845 (Version 2)
Quarter: 2024Q3

REPORT INFORMATION
  Report Type: Report from Study
  Country: US (occurrence: US)
  Receive Date: 20240814
  Receipt Date: 20240927
  Transmission Date: 20241017
  Serious: No
  Sender: DECIPHERA PHARMACEUTICALS
  Company Number: US-DECIPHERA PHARMACEUTICALS LLC-2024US000684

PATIENT
  Age: 72 Year
  Sex: Male
  Weight: 198.4 kg

DRUGS (2)
  1. QINLOCK [Suspect]
     Active Substance: RIPRETINIB
     Indication: Anal cancer
     Dosage: 150 MILLIGRAM, QD
     Route: 048
     Dates: start: 20240713
  2. QINLOCK [Suspect]
     Active Substance: RIPRETINIB
     Indication: Malignant melanoma

REACTIONS (4)
  - Stomatitis [Recovered/Resolved]
  - Fatigue [Recovering/Resolving]
  - COVID-19 [Recovered/Resolved]
  - Product use in unapproved indication [Unknown]

NARRATIVE: CASE EVENT DATE: 20240701
